FAERS Safety Report 20861199 (Version 4)
Quarter: 2024Q2

REPORT INFORMATION
  Report Type: Spontaneous
  Country: CA (occurrence: CA)
  Receive Date: 20220523
  Receipt Date: 20240612
  Transmission Date: 20240716
  Serious: Yes (Hospitalization, Other)
  Sender: FDA-Public Use
  Company Number: CA-BRISTOL-MYERS SQUIBB COMPANY-2022-039077

PATIENT
  Age: 44 Year
  Sex: Male

DRUGS (39)
  1. SUSTIVA [Interacting]
     Active Substance: EFAVIRENZ
     Indication: HIV infection
  2. SUSTIVA [Interacting]
     Active Substance: EFAVIRENZ
  3. ATAZANAVIR SULFATE [Interacting]
     Active Substance: ATAZANAVIR SULFATE
     Indication: HIV infection
  4. BUPROPION [Concomitant]
     Active Substance: BUPROPION
     Indication: Depression
     Route: 048
  5. BUPROPION [Concomitant]
     Active Substance: BUPROPION
     Indication: Bipolar disorder
  6. CITALOPRAM [Concomitant]
     Active Substance: CITALOPRAM\CITALOPRAM HYDROBROMIDE
     Indication: Psychotic disorder
  7. CLONAZEPAM [Concomitant]
     Active Substance: CLONAZEPAM
     Indication: Depression
     Route: 048
  8. CLONAZEPAM [Concomitant]
     Active Substance: CLONAZEPAM
     Indication: Bipolar disorder
  9. CLONAZEPAM [Concomitant]
     Active Substance: CLONAZEPAM
     Indication: Psychotic disorder
  10. EMTRIVA [Concomitant]
     Active Substance: EMTRICITABINE
     Indication: HIV infection
  11. EMTRIVA [Concomitant]
     Active Substance: EMTRICITABINE
     Indication: Depression
  12. ISENTRESS [Concomitant]
     Active Substance: RALTEGRAVIR POTASSIUM
     Indication: HIV infection
     Route: 048
  13. KALETRA [Concomitant]
     Active Substance: LOPINAVIR\RITONAVIR
     Indication: HIV infection
  14. LAMIVUDINE [Concomitant]
     Active Substance: LAMIVUDINE
     Indication: HIV infection
  15. QUETIAPINE [Concomitant]
     Active Substance: QUETIAPINE
     Indication: Depression
     Route: 048
  16. QUETIAPINE [Concomitant]
     Active Substance: QUETIAPINE
     Indication: Bipolar disorder
  17. RISPERIDONE [Concomitant]
     Active Substance: RISPERIDONE
     Indication: Depression
  18. RITONAVIR [Concomitant]
     Active Substance: RITONAVIR
     Indication: HIV infection
  19. RITONAVIR [Concomitant]
     Active Substance: RITONAVIR
     Indication: Depression
  20. SERTRALINE [Concomitant]
     Active Substance: SERTRALINE HYDROCHLORIDE
     Indication: Bipolar disorder
  21. ENFUVIRTIDE [Concomitant]
     Active Substance: ENFUVIRTIDE
     Indication: HIV infection
  22. TENOFOVIR [Concomitant]
     Active Substance: TENOFOVIR
     Indication: HIV infection
  23. TENOFOVIR [Concomitant]
     Active Substance: TENOFOVIR
     Indication: Depression
  24. VALPROIC ACID [Concomitant]
     Active Substance: VALPROIC ACID
     Indication: Bipolar disorder
  25. ZOPICLONE [Concomitant]
     Active Substance: ZOPICLONE
     Indication: Bipolar disorder
  26. EMTRICITABINE [Concomitant]
     Active Substance: EMTRICITABINE
     Indication: Depression
  27. BUPROPION HYDROCHLORIDE [Concomitant]
     Active Substance: BUPROPION HYDROCHLORIDE
     Indication: Depression
  28. CITALOPRAM HYDROBROMIDE [Concomitant]
     Active Substance: CITALOPRAM HYDROBROMIDE
     Indication: Psychotic disorder
  29. CITALOPRAM HYDROBROMIDE [Concomitant]
     Active Substance: CITALOPRAM HYDROBROMIDE
     Indication: Depression
  30. ENFUVIRTIDE [Concomitant]
     Active Substance: ENFUVIRTIDE
     Indication: HIV infection
  31. ENFUVIRTIDE [Concomitant]
     Active Substance: ENFUVIRTIDE
     Indication: Depression
  32. QUETIAPINE FUMARATE [Concomitant]
     Active Substance: QUETIAPINE FUMARATE
     Indication: Depression
     Route: 048
  33. QUETIAPINE FUMARATE [Concomitant]
     Active Substance: QUETIAPINE FUMARATE
     Indication: Bipolar disorder
  34. RALTEGRAVIR POTASSIUM [Concomitant]
     Active Substance: RALTEGRAVIR POTASSIUM
     Indication: HIV infection
     Route: 048
  35. RALTEGRAVIR POTASSIUM [Concomitant]
     Active Substance: RALTEGRAVIR POTASSIUM
     Indication: Depression
  36. RALTEGRAVIR POTASSIUM [Concomitant]
     Active Substance: RALTEGRAVIR POTASSIUM
     Route: 048
  37. BUPROPION HYDROBROMIDE [Concomitant]
     Active Substance: BUPROPION HYDROBROMIDE
     Indication: Depression
  38. BUPROPION HYDROBROMIDE [Concomitant]
     Active Substance: BUPROPION HYDROBROMIDE
     Indication: Bipolar disorder
  39. SERTRALINE HYDROCHLORIDE [Concomitant]
     Active Substance: SERTRALINE HYDROCHLORIDE
     Indication: Bipolar disorder

REACTIONS (13)
  - Depression suicidal [Recovered/Resolved]
  - Suicidal ideation [Recovered/Resolved]
  - Hospitalisation [Recovered/Resolved]
  - Anxiety [Recovered/Resolved]
  - Depressive symptom [Recovered/Resolved]
  - Paranoia [Recovered/Resolved]
  - Psychiatric decompensation [Recovered/Resolved]
  - Psychomotor skills impaired [Recovered/Resolved]
  - Psychotic disorder [Recovered/Resolved]
  - Tearfulness [Recovered/Resolved]
  - Drug interaction [Recovered/Resolved]
  - Depression [Recovered/Resolved]
  - Psychomotor retardation [Recovered/Resolved]
